FAERS Safety Report 9462044 (Version 1)
Quarter: 2013Q3

REPORT INFORMATION
  Report Type: Spontaneous
  Country: US (occurrence: None)
  Receive Date: 20130815
  Receipt Date: 20130815
  Transmission Date: 20140515
  Serious: Yes (Hospitalization)
  Sender: FDA-Public Use
  Company Number: None

PATIENT
  Age: 87 Year
  Sex: Female
  Weight: 84.1 kg

DRUGS (14)
  1. MIDAZOLAM [Suspect]
     Route: 042
  2. FENTANYL [Suspect]
     Route: 042
  3. PRECEDEX [Suspect]
  4. PROPOFOL [Suspect]
  5. REGULAR INSULIN [Concomitant]
  6. LANTUS [Concomitant]
  7. PERCOCET [Concomitant]
  8. MIRTAZAPINE [Concomitant]
  9. FENTANYL PATCH [Concomitant]
  10. METOPROLOL [Concomitant]
  11. CYMBALTA [Concomitant]
  12. SENNA [Concomitant]
  13. ASA [Concomitant]
  14. TAFLUPROST [Concomitant]

REACTIONS (4)
  - Oxygen saturation decreased [None]
  - Unresponsive to stimuli [None]
  - Respiratory acidosis [None]
  - Somnolence [None]
